FAERS Safety Report 21729829 (Version 1)
Quarter: 2022Q4

REPORT INFORMATION
  Report Type: Spontaneous
  Country: BR (occurrence: BR)
  Receive Date: 20221214
  Receipt Date: 20221214
  Transmission Date: 20230113
  Serious: Yes (Other)
  Sender: FDA-Public Use
  Company Number: BR-SLATE RUN PHARMACEUTICALS-22BR001445

PATIENT

DRUGS (3)
  1. CINACALCET HYDROCHLORIDE [Suspect]
     Active Substance: CINACALCET HYDROCHLORIDE
     Indication: Hyperparathyroidism secondary
     Dosage: 90 MILLIGRAM, QD
     Dates: start: 2019
  2. CINACALCET HYDROCHLORIDE [Suspect]
     Active Substance: CINACALCET HYDROCHLORIDE
     Dosage: 30 MILLIGRAM, QD
  3. CINACALCET [Concomitant]
     Active Substance: CINACALCET
     Indication: Hyperparathyroidism secondary
     Dosage: 30 MILLIGRAM, QD
     Dates: start: 2017

REACTIONS (8)
  - Spinal compression fracture [Recovered/Resolved with Sequelae]
  - Bone demineralisation [Recovered/Resolved]
  - Muscle atrophy [Unknown]
  - Bone erosion [Unknown]
  - Bone density decreased [Unknown]
  - Bone deformity [Unknown]
  - Kyphosis [Unknown]
  - Drug ineffective [Not Recovered/Not Resolved]

NARRATIVE: CASE EVENT DATE: 20190101
